FAERS Safety Report 25420000 (Version 2)
Quarter: 2025Q2

REPORT INFORMATION
  Report Type: Spontaneous
  Country: US (occurrence: US)
  Receive Date: 20250610
  Receipt Date: 20250618
  Transmission Date: 20250717
  Serious: No
  Sender: SANOFI AVENTIS
  Company Number: US-SANOFI-02549147

PATIENT
  Age: 35 Year
  Sex: Male

DRUGS (1)
  1. LANTUS SOLOSTAR [Suspect]
     Active Substance: INSULIN GLARGINE
     Indication: Diabetes mellitus
     Dosage: 40 UNITS AT BEDTIME, BUT TO TITRATE WITH UP TO 10 UNITS BEFORE OR AFTER DINNER, QD
     Route: 058

REACTIONS (5)
  - Injection site haemorrhage [Unknown]
  - Injection site induration [Unknown]
  - Injection site swelling [Unknown]
  - Device breakage [Unknown]
  - Off label use [Unknown]
